FAERS Safety Report 10839432 (Version 1)
Quarter: 2015Q1

REPORT INFORMATION
  Report Type: Spontaneous
  Country: FR (occurrence: None)
  Receive Date: 20150218
  Receipt Date: 20150218
  Transmission Date: 20150721
  Serious: Yes (Hospitalization)
  Sender: FDA-Public Use
  Company Number: FK201500747

PATIENT
  Age: 61 Year
  Sex: Male

DRUGS (3)
  1. TAHOR [Concomitant]
     Active Substance: ATORVASTATIN CALCIUM
  2. KARDEGIC [Concomitant]
     Active Substance: ASPIRIN LYSINE
  3. CEFTRIAXON KABI (CEFTRIAXONE) (CEFTRIAXONE) [Suspect]
     Active Substance: CEFTRIAXONE
     Indication: DIVERTICULITIS
     Dates: start: 201407, end: 201407

REACTIONS (2)
  - Rash pruritic [None]
  - Respiratory disorder [None]

NARRATIVE: CASE EVENT DATE: 201407
